FAERS Safety Report 6032366-3 (Version None)
Quarter: 2009Q1

REPORT INFORMATION
  Report Type: 
  Country: None (occurrence: None)
  Receive Date: 20090107
  Receipt Date: 20081222
  Transmission Date: 20090719
  Serious: Yes (Other)
  Sender: FDA-Public Use
  Company Number: 430026K08USA

PATIENT
  Age: 49 Year
  Sex: Male
  Weight: 82 kg

DRUGS (6)
  1. NOVANTRONE [Suspect]
     Indication: MULTIPLE SCLEROSIS
     Dosage: 12 MG, 1 IN 3 MONTHS, INTRAVENOUS
     Route: 042
     Dates: start: 20070612, end: 20070926
  2. WELLBUTRIN [Concomitant]
  3. ARICEPT [Concomitant]
  4. ZANAFLEX [Concomitant]
  5. XANAX [Concomitant]
  6. TOPAMAX [Concomitant]

REACTIONS (4)
  - CARDIAC VALVE DISEASE [None]
  - CHEST DISCOMFORT [None]
  - CHEST PAIN [None]
  - OEDEMA PERIPHERAL [None]
